FAERS Safety Report 4329804-0 (Version None)
Quarter: 2004Q1

REPORT INFORMATION
  Report Type: 
  Country: None (occurrence: None)
  Receive Date: 20040329
  Receipt Date: 20040311
  Transmission Date: 20041129
  Serious: Yes (Other)
  Sender: FDA-Public Use
  Company Number: US061547

PATIENT
  Age: 55 Year
  Sex: Male

DRUGS (7)
  1. ENBREL [Suspect]
     Indication: PSORIATIC ARTHROPATHY
     Dosage: 25 MG, 2 IN 1 WEEKS, SC
     Route: 058
     Dates: start: 20030917, end: 20031219
  2. METHOTREXATE [Concomitant]
  3. PREDNISONE [Concomitant]
  4. RISENDRONATE SODIUM [Concomitant]
  5. DILTIAZEM HYDROCHLORIDE [Concomitant]
  6. KETOPROFEN [Concomitant]
  7. ZOPICLONE [Concomitant]

REACTIONS (1)
  - AMAUROSIS FUGAX [None]
